FAERS Safety Report 6413329-2 (Version None)
Quarter: 2009Q4

REPORT INFORMATION
  Report Type: 
  Country: None (occurrence: None)
  Receive Date: 20091026
  Receipt Date: 20091015
  Transmission Date: 20100525
  Serious: Yes (Hospitalization)
  Sender: FDA-Public Use
  Company Number: FR-ROCHE-662897

PATIENT
  Sex: Male

DRUGS (12)
  1. METHOXY POLYETHYLENE GLYCOL-EPOETIN BETA [Suspect]
     Dosage: FORM: PRE-FILLED SYRINGE; LAST DOSE PRIOR TO SAE: 23 MARCH 2009.
     Route: 058
     Dates: start: 20090224
  2. LASILIX [Concomitant]
     Dates: start: 20081001
  3. IRBESARTAN [Concomitant]
     Dates: start: 20081001
  4. SOTALOL [Concomitant]
     Dates: start: 20081001
  5. ZOCOR [Concomitant]
     Dates: start: 20081001
  6. OROCAL D3 [Concomitant]
     Dosage: DRUG: OROCAL VIT D3
     Dates: start: 20081001
  7. FORLAX [Concomitant]
     Dates: start: 20081001
  8. KARDEGIC [Concomitant]
     Dates: start: 20081001
  9. INIPOMP [Concomitant]
     Dates: start: 20081001
  10. RENAGEL [Concomitant]
     Dates: start: 20081001
  11. FELODIPINE [Concomitant]
     Dates: start: 20081001
  12. TARDYFERON B9 [Concomitant]
     Dates: start: 20081001

REACTIONS (1)
  - LUNG DISORDER [None]
